FAERS Safety Report 24780997 (Version 1)
Quarter: 2024Q4

REPORT INFORMATION
  Report Type: Spontaneous
  Country: NL (occurrence: NL)
  Receive Date: 20241227
  Receipt Date: 20241227
  Transmission Date: 20250114
  Serious: Yes (Other)
  Sender: AUROBINDO
  Company Number: NL-LRB-01019856

PATIENT
  Age: 38 Year
  Sex: Male
  Weight: 82 kg

DRUGS (5)
  1. ENALAPRIL [Suspect]
     Active Substance: ENALAPRIL
     Indication: Hypertension
     Dosage: 5 MILLIGRAM, ONCE A DAY (1 PIECE ONCE PER DAY)
     Route: 048
     Dates: start: 20221001, end: 20241113
  2. ESOMEPRAZOLE [Suspect]
     Active Substance: ESOMEPRAZOLE
     Indication: Dyspepsia
     Dosage: 40 MILLIGRAM, ONCE A DAY (1 X PER DAY 1 PIECE)
     Route: 048
     Dates: start: 20050101
  3. QUETIAPINE [Suspect]
     Active Substance: QUETIAPINE
     Indication: Psychotic disorder
     Dosage: 200 MILLIGRAM, ONCE A DAY (1 PIECE ONCE PER DAY)
     Route: 048
     Dates: start: 19950101
  4. CARIPRAZINE [Suspect]
     Active Substance: CARIPRAZINE
     Indication: Psychotic disorder
     Dosage: 13.5 MILLIGRAM, 3 TIMES A DAY (3 PIECES 3 TIMES A DAY)
     Route: 048
     Dates: start: 20220901
  5. LITHIUM CARBONATE [Suspect]
     Active Substance: LITHIUM CARBONATE
     Indication: Affective disorder
     Dosage: 400 MILLIGRAM, ONCE A DAY (1 PIECE ONCE A DAY)
     Route: 048
     Dates: start: 20150201

REACTIONS (23)
  - Polyneuropathy [Not Recovered/Not Resolved]
  - Erectile dysfunction [Recovering/Resolving]
  - Abdominal distension [Not Recovered/Not Resolved]
  - Alopecia [Not Recovered/Not Resolved]
  - Fatigue [Not Recovered/Not Resolved]
  - Renal disorder [Not Recovered/Not Resolved]
  - Anxiety [Recovering/Resolving]
  - Constipation [Recovering/Resolving]
  - Depressed mood [Recovering/Resolving]
  - Dry mouth [Recovering/Resolving]
  - Dyspnoea [Recovering/Resolving]
  - Incontinence [Recovering/Resolving]
  - Insomnia [Recovering/Resolving]
  - Malaise [Recovering/Resolving]
  - Muscle spasms [Recovering/Resolving]
  - Mood altered [Recovering/Resolving]
  - Oedema peripheral [Recovering/Resolving]
  - Paraesthesia [Recovering/Resolving]
  - Tinnitus [Recovering/Resolving]
  - Vision blurred [Recovering/Resolving]
  - Balance disorder [Recovered/Resolved]
  - Coordination abnormal [Recovered/Resolved]
  - Slow response to stimuli [Recovered/Resolved]
